FAERS Safety Report 7008735-1 (Version None)
Quarter: 2010Q3

REPORT INFORMATION
  Report Type: 
  Country: None (occurrence: None)
  Receive Date: 20100921
  Receipt Date: 20100909
  Transmission Date: 20110219
  Serious: Yes (Other)
  Sender: FDA-Public Use
  Company Number: 2010SP048487

PATIENT
  Sex: Female

DRUGS (5)
  1. IMPLANON [Suspect]
     Indication: PRODUCT USED FOR UNKNOWN INDICATION
     Dates: start: 20051212
  2. ATORVASTATIN [Concomitant]
  3. REMIPRIL [Concomitant]
  4. TILDIEM RETARD [Concomitant]
  5. ASPIRIN [Concomitant]

REACTIONS (2)
  - BREAST CANCER FEMALE [None]
  - MYOCARDIAL INFARCTION [None]
